FAERS Safety Report 7099404-0 (Version None)
Quarter: 2010Q4

REPORT INFORMATION
  Report Type: 
  Country: None (occurrence: None)
  Receive Date: 20101105
  Receipt Date: 20101027
  Transmission Date: 20110411
  Serious: Yes (Death)
  Sender: FDA-Public Use
  Company Number: TRP_07358_2010

PATIENT

DRUGS (5)
  1. AMPHOTERICIN B [Suspect]
     Indication: MENINGITIS CRYPTOCOCCAL
     Dosage: (1 MG/KG PER DAY FOR 2 WEEKS)
  2. FLUCYTOSINE [Suspect]
     Indication: MENINGITIS CRYPTOCOCCAL
     Dosage: (25 MG/KG QID)
  3. DIFLUCAN [Suspect]
     Indication: MENINGITIS CRYPTOCOCCAL
     Dosage: (400 MG QD ORAL)  ; (200 MG QD ORAL)
     Route: 048
  4. NORMAL SALINE [Concomitant]
  5. TRIMETHOPRIM + SULFAMETHOXAZOLE [Concomitant]

REACTIONS (8)
  - ALANINE AMINOTRANSFERASE INCREASED [None]
  - ANAEMIA [None]
  - BLOOD CREATININE INCREASED [None]
  - DRUG TOXICITY [None]
  - HAEMOGLOBIN DECREASED [None]
  - HEPATORENAL SYNDROME [None]
  - RENAL IMPAIRMENT [None]
  - THROMBOCYTOPENIA [None]
